FAERS Safety Report 4840559-3 (Version None)
Quarter: 2005Q4

REPORT INFORMATION
  Report Type: 
  Country: None (occurrence: None)
  Receive Date: 20051130
  Receipt Date: 20051014
  Transmission Date: 20060501
  Serious: No
  Sender: FDA-Public Use
  Company Number: US-BRISTOL-MYERS SQUIBB COMPANY-13145800

PATIENT
  Age: 33 Year
  Sex: Female
  Weight: 63 kg

DRUGS (1)
  1. ERBITUX [Suspect]
     Route: 061
     Dates: start: 20051001, end: 20051001

REACTIONS (3)
  - ACCIDENTAL EXPOSURE [None]
  - PARAESTHESIA [None]
  - PREGNANCY [None]
